FAERS Safety Report 23258951 (Version 1)
Quarter: 2023Q4

REPORT INFORMATION
  Report Type: Other
  Country: None (occurrence: IT)
  Receive Date: 20231204
  Receipt Date: 20231204
  Transmission Date: 20240109
  Serious: Yes (Other)
  Sender: FDA-Public Use
  Company Number: IT-Appco Pharma LLC-2148962

PATIENT
  Age: 19 Year
  Sex: Male

DRUGS (4)
  1. VENLAFAXINE [Suspect]
     Active Substance: VENLAFAXINE HYDROCHLORIDE
     Indication: Depressive symptom
     Route: 065
  2. RISPERIDONE [Suspect]
     Active Substance: RISPERIDONE
     Route: 065
  3. BUPROPION [Suspect]
     Active Substance: BUPROPION
     Route: 065
  4. CANNABIS SATIVA SUBSP. INDICA TOP [Suspect]
     Active Substance: CANNABIS SATIVA SUBSP. INDICA TOP
     Route: 065

REACTIONS (3)
  - Drug ineffective [Unknown]
  - Hallucination, auditory [Unknown]
  - Condition aggravated [Unknown]
